FAERS Safety Report 18951916 (Version 3)
Quarter: 2021Q2

REPORT INFORMATION
  Report Type: Spontaneous
  Country: US (occurrence: US)
  Receive Date: 20210301
  Receipt Date: 20210430
  Transmission Date: 20210717
  Serious: No
  Sender: FDA-Public Use
  Company Number: US-JNJFOC-20210237306

PATIENT
  Age: 65 Year
  Sex: Female

DRUGS (1)
  1. INTELENCE [Suspect]
     Active Substance: ETRAVIRINE
     Indication: HIV INFECTION
     Route: 048

REACTIONS (2)
  - Incorrect dose administered [Unknown]
  - Product commingling [Unknown]

NARRATIVE: CASE EVENT DATE: 202101
